FAERS Safety Report 17518878 (Version 2)
Quarter: 2020Q1

REPORT INFORMATION
  Report Type: Spontaneous
  Country: US (occurrence: US)
  Receive Date: 20200310
  Receipt Date: 20200312
  Transmission Date: 20200409
  Serious: Yes (Death, Other)
  Sender: FDA-Public Use
  Company Number: US-AMGEN-USASP2020036582

PATIENT

DRUGS (4)
  1. MITOXANTRONE [Concomitant]
     Active Substance: MITOXANTRONE HYDROCHLORIDE
     Indication: ACUTE LYMPHOCYTIC LEUKAEMIA
     Dosage: 12 MILLIGRAM/SQ. METER PER DAY, CYCLICAL (28 DAYS CYCLE)
  2. FILGRASTIM [Suspect]
     Active Substance: FILGRASTIM
     Indication: ACUTE LYMPHOCYTIC LEUKAEMIA
     Dosage: 5 MICROGRAM PER KILOGRAM OF BODY WEIGHT/INSTITUTIONAL STANDARD DOSE, CYCLICAL (28 DAYS CYCLE)
     Route: 065
  3. FLUDARABINE [Concomitant]
     Active Substance: FLUDARABINE PHOSPHATE
     Indication: ACUTE LYMPHOCYTIC LEUKAEMIA
     Dosage: 30 MILLIGRAM/SQ. METER PER DAY, ON DAYS 2 THROUGH 6, CYCLICAL (28 DAYS CYCLE)
  4. CYTARABINE. [Concomitant]
     Active Substance: CYTARABINE
     Indication: ACUTE LYMPHOCYTIC LEUKAEMIA
     Dosage: 2.0 G PER SQUARE METER PER DAY ON DAYS 1 THROUGH 6, CYCLICAL (28 DAYS CYCLE)

REACTIONS (23)
  - Pneumonia [Unknown]
  - Escherichia sepsis [Unknown]
  - Stomatitis [Unknown]
  - Venoocclusive disease [Unknown]
  - Multiple organ dysfunction syndrome [Unknown]
  - Clostridium difficile colitis [Unknown]
  - Pancytopenia [Unknown]
  - Sepsis [Unknown]
  - Hepatic enzyme increased [Unknown]
  - Nausea [Unknown]
  - Febrile neutropenia [Unknown]
  - Respiratory failure [Unknown]
  - Death [Fatal]
  - Hyperbilirubinaemia [Unknown]
  - Hypotension [Unknown]
  - Klebsiella infection [Unknown]
  - Neutropenic sepsis [Unknown]
  - Bacteraemia [Unknown]
  - Pneumonia fungal [Unknown]
  - Pyrexia [Unknown]
  - Disease progression [Unknown]
  - Abdominal pain [Unknown]
  - Septic shock [Unknown]
